FAERS Safety Report 21665598 (Version 1)
Quarter: 2022Q4

REPORT INFORMATION
  Report Type: Other
  Country: HN (occurrence: HN)
  Receive Date: 20221201
  Receipt Date: 20221201
  Transmission Date: 20230113
  Serious: Yes (Death)
  Sender: FDA-Public Use
  Company Number: HN-TOLMAR, INC.-22HN037667

PATIENT
  Sex: Male

DRUGS (1)
  1. ELIGARD [Suspect]
     Active Substance: LEUPROLIDE ACETATE
     Indication: Prostate cancer
     Dosage: 45 MILLIGRAM, Q 6 MONTH
     Route: 058

REACTIONS (1)
  - Prostate cancer [Fatal]
